FAERS Safety Report 8881066 (Version 2)
Quarter: 2015Q3

REPORT INFORMATION
  Report Type: Report from Study
  Country: US (occurrence: US)
  Receive Date: 20121031
  Receipt Date: 20150903
  Transmission Date: 20151125
  Serious: Yes (Death)
  Sender: FDA-Public Use
  Company Number: US-ROCHE-1133944

PATIENT
  Sex: Female

DRUGS (3)
  1. RAPTIVA [Suspect]
     Active Substance: EFALIZUMAB
     Indication: PSORIASIS
     Route: 065
     Dates: start: 20050309, end: 20060309
  2. RAPTIVA [Suspect]
     Active Substance: EFALIZUMAB
     Indication: PUSTULAR PSORIASIS
  3. PUVA [Concomitant]
     Active Substance: PSORALEN

REACTIONS (4)
  - Erythema [Unknown]
  - Swelling [Unknown]
  - Death [Fatal]
  - Pruritus [Unknown]
